FAERS Safety Report 13853297 (Version 1)
Quarter: 2017Q3

REPORT INFORMATION
  Report Type: Spontaneous
  Country: JP (occurrence: JP)
  Receive Date: 20170809
  Receipt Date: 20170809
  Transmission Date: 20171127
  Serious: Yes (Other)
  Sender: FDA-Public Use
  Company Number: JP-JNJFOC-20170806530

PATIENT
  Age: 69 Year
  Sex: Male

DRUGS (2)
  1. APIXABAN [Concomitant]
     Active Substance: APIXABAN
     Route: 065
  2. RIVAROXABAN [Suspect]
     Active Substance: RIVAROXABAN
     Indication: PRODUCT USED FOR UNKNOWN INDICATION
     Dosage: DOSAGE: UNKNOWN
     Route: 048
     Dates: start: 201308

REACTIONS (6)
  - Arrhythmia [Unknown]
  - Cerebral haemorrhage [Unknown]
  - Gingival bleeding [Unknown]
  - Dyspnoea exertional [Unknown]
  - Palpitations [Unknown]
  - Epistaxis [Unknown]

NARRATIVE: CASE EVENT DATE: 201406
